FAERS Safety Report 8998663 (Version 3)
Quarter: 2013Q2

REPORT INFORMATION
  Report Type: Spontaneous
  Country: US (occurrence: US)
  Receive Date: 20130103
  Receipt Date: 20130407
  Transmission Date: 20140414
  Serious: No
  Sender: FDA-Public Use
  Company Number: US-009507513-1212USA008603

PATIENT
  Age: 73 Year
  Sex: Female
  Weight: 72.11 kg

DRUGS (3)
  1. NASONEX [Suspect]
     Indication: EUSTACHIAN TUBE DYSFUNCTION
     Dosage: 4 DF(2 SPRAYS IN EACH NOSTRIL), QD
     Route: 045
     Dates: start: 20121116, end: 20121219
  2. NASONEX [Suspect]
     Indication: NASAL DECONGESTION THERAPY
  3. VITAMINS (UNSPECIFIED) [Concomitant]

REACTIONS (3)
  - Headache [Recovered/Resolved]
  - Dysgeusia [Recovered/Resolved]
  - Product quality issue [Unknown]
